FAERS Safety Report 15935308 (Version 2)
Quarter: 2019Q1

REPORT INFORMATION
  Report Type: Report from Study
  Country: None (occurrence: US)
  Receive Date: 20190207
  Receipt Date: 20190214
  Transmission Date: 20190417
  Serious: Yes (Other)
  Sender: FDA-Public Use
  Company Number: US-ABBVIE-19S-163-2651228-00

PATIENT
  Sex: Female
  Weight: 90.8 kg

DRUGS (6)
  1. DEPAKOTE ER [Suspect]
     Active Substance: DIVALPROEX SODIUM
     Indication: BIPOLAR DISORDER
     Route: 048
     Dates: start: 2009
  2. GABAPENTIN. [Concomitant]
     Active Substance: GABAPENTIN
     Indication: NEURALGIA
  3. EFFEXOR [Concomitant]
     Active Substance: VENLAFAXINE HYDROCHLORIDE
     Indication: DEPRESSION
  4. CELEXA [Concomitant]
     Active Substance: CITALOPRAM HYDROBROMIDE
     Indication: DEPRESSION
  5. MIRTAZAPINE. [Concomitant]
     Active Substance: MIRTAZAPINE
     Indication: DEPRESSION
  6. PRIMIDONE. [Concomitant]
     Active Substance: PRIMIDONE
     Indication: TREMOR

REACTIONS (8)
  - Nephrolithiasis [Recovered/Resolved]
  - Hysterectomy [Unknown]
  - Pneumothorax [Unknown]
  - Exostosis [Unknown]
  - Metabolic surgery [Unknown]
  - Thoracic haemorrhage [Unknown]
  - Osteoarthritis [Unknown]
  - Post procedural complication [Unknown]

NARRATIVE: CASE EVENT DATE: 2009
